FAERS Safety Report 5502503-5 (Version None)
Quarter: 2007Q4

REPORT INFORMATION
  Report Type: 
  Country: None (occurrence: None)
  Receive Date: 20071030
  Receipt Date: 20071025
  Transmission Date: 20080405
  Serious: Yes (Death, Hospitalization)
  Sender: FDA-Public Use
  Company Number: US-PFIZER INC-2007089850

PATIENT
  Sex: Male
  Weight: 71.3 kg

DRUGS (11)
  1. SUTENT [Suspect]
     Indication: THYROID CANCER METASTATIC
     Route: 048
     Dates: start: 20070731, end: 20071024
  2. LOVENOX [Concomitant]
  3. LEVOTHYROXINE SODIUM [Concomitant]
  4. OMEPRAZOLE [Concomitant]
  5. METHYLIN [Concomitant]
  6. NEURONTIN [Concomitant]
  7. ZOFRAN [Concomitant]
  8. REQUIP [Concomitant]
  9. ATROVENT [Concomitant]
  10. SENNA [Concomitant]
  11. ACETAMINOPHEN W/ CODEINE [Concomitant]

REACTIONS (2)
  - BRADYCARDIA [None]
  - UPPER GASTROINTESTINAL HAEMORRHAGE [None]
